FAERS Safety Report 13875101 (Version 1)
Quarter: 2017Q3

REPORT INFORMATION
  Report Type: Spontaneous
  Country: FR (occurrence: FR)
  Receive Date: 20170816
  Receipt Date: 20170816
  Transmission Date: 20171127
  Serious: Yes (Other)
  Sender: FDA-Public Use
  Company Number: FR-MYLANLABS-2017M1050576

PATIENT

DRUGS (2)
  1. FONDAPARINUX [Suspect]
     Active Substance: FONDAPARINUX
     Indication: THROMBOSIS PROPHYLAXIS
     Dosage: 2.5 MG/0.5ML (2.5 MG, 1 IN 1 DAY) (BOX-A)
     Dates: start: 20170717
  2. FONDAPARINUX [Suspect]
     Active Substance: FONDAPARINUX
     Dosage: 2.5 MG/0.5ML (2.5 MG, 1 IN 1 DAY) (BOX-B)
     Dates: start: 20170718

REACTIONS (3)
  - Device issue [Unknown]
  - Manufacturing issue [Unknown]
  - Suspected transmission of an infectious agent via product [Unknown]

NARRATIVE: CASE EVENT DATE: 20170718
